FAERS Safety Report 12114722 (Version 1)
Quarter: 2016Q1

REPORT INFORMATION
  Report Type: Spontaneous
  Country: US (occurrence: None)
  Receive Date: 20160224
  Receipt Date: 20160224
  Transmission Date: 20160526
  Serious: Yes (Other)
  Sender: FDA-Public Use
  Company Number: None

PATIENT
  Age: 54 Year
  Sex: Male
  Weight: 0 kg

DRUGS (1)
  1. HUMIRA [Suspect]
     Active Substance: ADALIMUMAB
     Dosage: SUBCUTANEOUS 057   INJECTABLE 2 WEEKS
     Route: 058

REACTIONS (6)
  - Alopecia [None]
  - Migraine [None]
  - Hypertension [None]
  - No therapeutic response [None]
  - Nodule [None]
  - Breast mass [None]

NARRATIVE: CASE EVENT DATE: 20160223
